FAERS Safety Report 16890550 (Version 1)
Quarter: 2019Q4

REPORT INFORMATION
  Report Type: Spontaneous
  Country: US (occurrence: US)
  Receive Date: 20190812
  Receipt Date: 20190812
  Transmission Date: 20200122
  Serious: No
  Sender: FDA-Public Use
  Company Number: None

PATIENT
  Age: 64 Year
  Sex: Male
  Weight: 57.15 kg

DRUGS (1)
  1. ATORVASTATIN [Suspect]
     Active Substance: ATORVASTATIN
     Indication: HYPERLIPIDAEMIA
     Route: 048
     Dates: start: 20190301, end: 20190618

REACTIONS (12)
  - Chills [None]
  - Vomiting [None]
  - Myopathy [None]
  - Nausea [None]
  - Cough [None]
  - Asthenia [None]
  - Muscular weakness [None]
  - Influenza [None]
  - Myalgia [None]
  - Blood creatine phosphokinase increased [None]
  - Bradycardia [None]
  - Pyrexia [None]
